FAERS Safety Report 11203839 (Version 2)
Quarter: 2015Q3

REPORT INFORMATION
  Report Type: Report from Study
  Country: HR (occurrence: HR)
  Receive Date: 20150619
  Receipt Date: 20150717
  Transmission Date: 20151125
  Serious: Yes (Hospitalization)
  Sender: FDA-Public Use
  Company Number: HR-ABBVIE-15P-216-1401753-00

PATIENT
  Sex: Female

DRUGS (3)
  1. LEVODOPA/CARBIDOPA [Suspect]
     Active Substance: CARBIDOPA\LEVODOPA
     Indication: PRODUCT USED FOR UNKNOWN INDICATION
     Route: 050
     Dates: end: 20150611
  2. NAKOM [Concomitant]
     Indication: PRODUCT USED FOR UNKNOWN INDICATION
     Dates: start: 20150611, end: 20150617
  3. LEVODOPA/CARBIDOPA [Suspect]
     Active Substance: CARBIDOPA\LEVODOPA
     Route: 050
     Dates: start: 20150617

REACTIONS (6)
  - Panic reaction [Recovered/Resolved]
  - Device dislocation [Recovered/Resolved]
  - Device expulsion [Recovered/Resolved]
  - Agitation [Recovered/Resolved]
  - Stoma site irritation [Recovering/Resolving]
  - Stoma site erythema [Recovering/Resolving]

NARRATIVE: CASE EVENT DATE: 20150531
